FAERS Safety Report 4636547-2 (Version None)
Quarter: 2005Q2

REPORT INFORMATION
  Report Type: 
  Country: None (occurrence: None)
  Receive Date: 20050415
  Receipt Date: 20050412
  Transmission Date: 20051028
  Serious: Yes (Life-Threatening, Hospitalization)
  Sender: FDA-Public Use
  Company Number: NL-GLAXOSMITHKLINE-B0377747A

PATIENT
  Age: 60 Year
  Sex: Male

DRUGS (2)
  1. FORTUM [Suspect]
     Dosage: 1000MG UNKNOWN
     Route: 065
     Dates: start: 20050124, end: 20050127
  2. LANTUS [Suspect]
     Indication: DIABETES MELLITUS
     Dosage: 24IU PER DAY
     Route: 065

REACTIONS (3)
  - DRUG INTERACTION [None]
  - HYPERSENSITIVITY [None]
  - SWELLING [None]
